FAERS Safety Report 14998079 (Version 4)
Quarter: 2019Q1

REPORT INFORMATION
  Report Type: Spontaneous
  Country: US (occurrence: US)
  Receive Date: 20180611
  Receipt Date: 20190215
  Transmission Date: 20190417
  Serious: Yes (Other)
  Sender: FDA-Public Use
  Company Number: US-ACTELION-A-NJ2018-173607

PATIENT
  Age: 84 Year
  Sex: Female
  Weight: 86.62 kg

DRUGS (2)
  1. OPSUMIT [Suspect]
     Active Substance: MACITENTAN
     Indication: PULMONARY ARTERIAL HYPERTENSION
     Dosage: 10 MG, QD
     Route: 048
  2. REVATIO [Concomitant]
     Active Substance: SILDENAFIL CITRATE

REACTIONS (7)
  - Dyspnoea [Unknown]
  - Fall [Unknown]
  - Product dose omission [Unknown]
  - Malaise [Unknown]
  - Headache [Unknown]
  - Fractured coccyx [Unknown]
  - Blindness [Unknown]

NARRATIVE: CASE EVENT DATE: 20180507
